FAERS Safety Report 4641770-7 (Version None)
Quarter: 2005Q2

REPORT INFORMATION
  Report Type: 
  Country: None (occurrence: None)
  Receive Date: 20050421
  Receipt Date: 20020308
  Transmission Date: 20051028
  Serious: Yes (Disabling)
  Sender: FDA-Public Use
  Company Number: US-MERCK-0203USA01168

PATIENT
  Age: 67 Year
  Sex: Female

DRUGS (9)
  1. FOSAMAX [Suspect]
     Indication: OSTEOPOROSIS
     Route: 048
     Dates: start: 20020306, end: 20020301
  2. FOSAMAX [Suspect]
     Route: 048
     Dates: start: 20050101
  3. CALCIUM (UNSPECIFIED) [Concomitant]
     Route: 065
  4. VITAMINS (UNSPECIFIED) [Concomitant]
     Route: 065
  5. GLUCOSAMINE [Concomitant]
     Route: 065
  6. ZOVIRAX [Concomitant]
     Route: 065
  7. ASPIRIN [Concomitant]
     Route: 065
  8. METFORMIN [Concomitant]
     Route: 065
  9. MEVACOR [Concomitant]
     Route: 048

REACTIONS (5)
  - DIZZINESS [None]
  - INCREASED APPETITE [None]
  - JOINT SWELLING [None]
  - TINNITUS [None]
  - VISION BLURRED [None]
